FAERS Safety Report 25889029 (Version 1)
Quarter: 2025Q4

REPORT INFORMATION
  Report Type: Spontaneous
  Country: US (occurrence: US)
  Receive Date: 20251007
  Receipt Date: 20251007
  Transmission Date: 20260117
  Serious: No
  Sender: Kenvue
  Company Number: US-KENVUE-20250904713

PATIENT
  Sex: Female

DRUGS (1)
  1. TYLENOL [Suspect]
     Active Substance: ACETAMINOPHEN
     Indication: Headache
     Dosage: 1 TABLET, AS NEEDED TWO OR THREE TIMES ALL THROUGH OUT PREGNANCY
     Route: 065
     Dates: start: 2017

REACTIONS (1)
  - Exposure during pregnancy [Unknown]

NARRATIVE: CASE EVENT DATE: 20170101
